FAERS Safety Report 19145559 (Version 1)
Quarter: 2021Q2

REPORT INFORMATION
  Report Type: Spontaneous
  Country: GB (occurrence: GB)
  Receive Date: 20210416
  Receipt Date: 20210416
  Transmission Date: 20210717
  Serious: Yes (Other)
  Sender: FDA-Public Use
  Company Number: GB-ACCORD-222575

PATIENT
  Age: 46 Year
  Sex: Female
  Weight: 87 kg

DRUGS (2)
  1. LEVOTHYROXINE. [Suspect]
     Active Substance: LEVOTHYROXINE
     Indication: HYPOTHYROIDISM
     Route: 048
     Dates: start: 20101228, end: 20210405
  2. TRANEXAMIC ACID. [Suspect]
     Active Substance: TRANEXAMIC ACID
     Indication: HEAVY MENSTRUAL BLEEDING
     Route: 048
     Dates: start: 20210131

REACTIONS (13)
  - Anaemia [Recovering/Resolving]
  - Iron deficiency [Recovering/Resolving]
  - Dysmenorrhoea [Unknown]
  - Oligomenorrhoea [Recovering/Resolving]
  - Mood swings [Recovered/Resolved with Sequelae]
  - Asthenia [Unknown]
  - Fatigue [Unknown]
  - Pain [Unknown]
  - Heavy menstrual bleeding [Unknown]
  - Peripheral coldness [Unknown]
  - Back pain [Unknown]
  - Arthralgia [Unknown]
  - Feeling of body temperature change [Unknown]

NARRATIVE: CASE EVENT DATE: 20190101
